FAERS Safety Report 6253306-8 (Version None)
Quarter: 2009Q3

REPORT INFORMATION
  Report Type: 
  Country: None (occurrence: None)
  Receive Date: 20090701
  Receipt Date: 20090626
  Transmission Date: 20100115
  Serious: Yes (Hospitalization)
  Sender: FDA-Public Use
  Company Number: JP-EISAI INC.-E2020-04821-SPO-JP

PATIENT
  Age: 81 Year
  Sex: Male
  Weight: 49 kg

DRUGS (12)
  1. ARICEPT [Suspect]
     Indication: DEMENTIA
     Route: 048
     Dates: start: 20090218, end: 20090304
  2. ARICEPT [Suspect]
     Route: 048
     Dates: start: 20090307, end: 20090330
  3. REQUIP [Concomitant]
     Route: 048
     Dates: start: 20090423
  4. BASEN OD [Concomitant]
     Indication: DIABETES MELLITUS
     Dates: start: 20080414, end: 20090323
  5. DIOVAN [Concomitant]
     Indication: HYPERTENSION
     Route: 048
     Dates: start: 20080521, end: 20090323
  6. ANPLAG [Concomitant]
     Route: 048
     Dates: start: 20090218
  7. OLMETEC [Concomitant]
     Indication: HYPERTENSION
     Route: 048
     Dates: start: 20090324
  8. MUCOSOLVAN [Concomitant]
     Route: 048
     Dates: start: 20090330
  9. LANSOPRAZOLE [Concomitant]
     Route: 048
     Dates: start: 20090408
  10. GASMOTIN [Concomitant]
     Route: 048
     Dates: start: 20090408
  11. DOGMATYL [Concomitant]
     Route: 048
     Dates: start: 20090409
  12. NAUZELIN [Concomitant]
     Route: 048
     Dates: start: 20090423

REACTIONS (4)
  - DECREASED APPETITE [None]
  - NAUSEA [None]
  - PARKINSON'S DISEASE [None]
  - VOMITING [None]
